FAERS Safety Report 15567711 (Version 2)
Quarter: 2018Q4

REPORT INFORMATION
  Report Type: Spontaneous
  Country: US (occurrence: US)
  Receive Date: 20181030
  Receipt Date: 20181211
  Transmission Date: 20190205
  Serious: No
  Sender: FDA-Public Use
  Company Number: US-INDIVIOR LIMITED-INDV-115194-2018

PATIENT
  Sex: Male

DRUGS (1)
  1. SUBLOCADE [Suspect]
     Active Substance: BUPRENORPHINE
     Indication: DRUG USE DISORDER
     Dosage: 300 MG, QMO (FIRST INJECTION)
     Route: 058
     Dates: start: 20180910, end: 2018

REACTIONS (2)
  - Injection site pain [Recovered/Resolved]
  - Drug delivery system removal [Recovered/Resolved]

NARRATIVE: CASE EVENT DATE: 2018
